FAERS Safety Report 7252032-6 (Version None)
Quarter: 2011Q1

REPORT INFORMATION
  Report Type: 
  Country: None (occurrence: None)
  Receive Date: 20110128
  Receipt Date: 20100108
  Transmission Date: 20110831
  Serious: No
  Sender: FDA-Public Use
  Company Number: US-ABBOTT-10P-163-0619043-00

PATIENT
  Sex: Female

DRUGS (1)
  1. HUMIRA [Suspect]
     Indication: PRODUCT USED FOR UNKNOWN INDICATION

REACTIONS (6)
  - INJECTION SITE PAIN [None]
  - RASH [None]
  - MALAISE [None]
  - SKIN DISCOLOURATION [None]
  - ANGIOEDEMA [None]
  - SKIN EXFOLIATION [None]
